FAERS Safety Report 23610005 (Version 1)
Quarter: 2024Q1

REPORT INFORMATION
  Report Type: Spontaneous
  Country: JP (occurrence: JP)
  Receive Date: 20240308
  Receipt Date: 20240308
  Transmission Date: 20240409
  Serious: Yes (Life-Threatening, Hospitalization, Other)
  Sender: FDA-Public Use
  Company Number: JP-SANDOZ-SDZ2024JP025034

PATIENT
  Age: 6 Decade
  Sex: Female

DRUGS (6)
  1. AMLODIPINE [Suspect]
     Active Substance: AMLODIPINE BESYLATE
     Indication: Product used for unknown indication
     Dosage: 700 MG
     Route: 048
  2. AZELNIDIPINE [Suspect]
     Active Substance: AZELNIDIPINE
     Indication: Product used for unknown indication
     Dosage: 440 MG
     Route: 048
  3. NIFEDIPINE [Suspect]
     Active Substance: NIFEDIPINE
     Indication: Product used for unknown indication
     Dosage: 2160 MG
     Route: 048
  4. OLMESARTAN [Suspect]
     Active Substance: OLMESARTAN
     Indication: Product used for unknown indication
     Dosage: 1100 MG
     Route: 048
  5. TELMISARTAN [Suspect]
     Active Substance: TELMISARTAN
     Indication: Product used for unknown indication
     Dosage: 1520 MG
     Route: 048
  6. VILDAGLIPTIN [Suspect]
     Active Substance: VILDAGLIPTIN
     Indication: Product used for unknown indication
     Dosage: 7000 MG
     Route: 048

REACTIONS (4)
  - Compartment syndrome [Recovering/Resolving]
  - Angioedema [Unknown]
  - Toxicity to various agents [Recovering/Resolving]
  - Overdose [Unknown]
